FAERS Safety Report 12677454 (Version 2)
Quarter: 2016Q3

REPORT INFORMATION
  Report Type: Spontaneous
  Country: GB (occurrence: GB)
  Receive Date: 20160823
  Receipt Date: 20160919
  Transmission Date: 20161109
  Serious: Yes (Hospitalization)
  Sender: FDA-Public Use
  Company Number: GB-TEVA-684911ACC

PATIENT
  Age: 67 Year
  Sex: Male

DRUGS (8)
  1. RISPERIDONE. [Concomitant]
     Active Substance: RISPERIDONE
     Dosage: 6 MILLIGRAM DAILY; AT NIGHT
     Route: 048
  2. TAMSULOSIN [Concomitant]
     Active Substance: TAMSULOSIN
     Dosage: 400 MICROGRAM DAILY; EVERY MORNING
     Route: 048
  3. PROCYCLIDINE [Concomitant]
     Active Substance: PROCYCLIDINE
     Dosage: 5 MILLIGRAM DAILY; AT NIGHT
     Route: 048
  4. FOLIC ACID. [Concomitant]
     Active Substance: FOLIC ACID
     Dosage: 5 MILLIGRAM DAILY;
     Route: 048
  5. ONDANSETRON [Concomitant]
     Active Substance: ONDANSETRON
     Dosage: 12 MILLIGRAM DAILY; AS REQUIRED
     Route: 048
  6. SOLIFENACIN [Concomitant]
     Active Substance: SOLIFENACIN
     Dosage: 5 MILLIGRAM DAILY; EVERY MORNING
     Route: 048
  7. LANSOPRAZOLE. [Suspect]
     Active Substance: LANSOPRAZOLE
     Indication: PROPHYLAXIS AGAINST GASTROINTESTINAL ULCER
     Dosage: 30 MILLIGRAM DAILY;
     Route: 048
  8. SERTRALINE [Suspect]
     Active Substance: SERTRALINE HYDROCHLORIDE
     Route: 048

REACTIONS (1)
  - Hyponatraemia [Recovered/Resolved]

NARRATIVE: CASE EVENT DATE: 20160408
